FAERS Safety Report 12060833 (Version 2)
Quarter: 2018Q2

REPORT INFORMATION
  Report Type: Spontaneous
  Country: US (occurrence: US)
  Receive Date: 20160210
  Receipt Date: 20180430
  Transmission Date: 20180711
  Serious: Yes (Other)
  Sender: FDA-Public Use
  Company Number: US-JNJFOC-20160202097

PATIENT
  Sex: Female
  Weight: 63.5 kg

DRUGS (11)
  1. TOPIRAMATE. [Suspect]
     Active Substance: TOPIRAMATE
     Indication: HEADACHE
     Route: 048
     Dates: start: 201801
  2. TOPIRAMATE. [Suspect]
     Active Substance: TOPIRAMATE
     Indication: HEADACHE
     Route: 048
  3. GABAPENTIN. [Concomitant]
     Active Substance: GABAPENTIN
     Indication: BACK DISORDER
     Route: 065
  4. BACLOFEN. [Concomitant]
     Active Substance: BACLOFEN
     Indication: MUSCLE RELAXANT THERAPY
     Route: 065
  5. HYDROCODONE [Concomitant]
     Active Substance: HYDROCODONE
     Indication: PAIN MANAGEMENT
     Route: 065
  6. ZYRTEC [Concomitant]
     Active Substance: CETIRIZINE HYDROCHLORIDE
     Indication: HYPERSENSITIVITY
     Route: 065
     Dates: start: 20180424
  7. CELEBREX [Concomitant]
     Active Substance: CELECOXIB
     Indication: BACK DISORDER
     Route: 065
  8. TOPAMAX [Suspect]
     Active Substance: TOPIRAMATE
     Indication: HEADACHE
     Route: 048
     Dates: start: 2003, end: 2012
  9. TOPAMAX [Suspect]
     Active Substance: TOPIRAMATE
     Indication: HEADACHE
     Route: 048
     Dates: start: 2012
  10. TOPAMAX [Suspect]
     Active Substance: TOPIRAMATE
     Indication: HEADACHE
     Route: 048
     Dates: end: 201801
  11. TOPIRAMATE. [Suspect]
     Active Substance: TOPIRAMATE
     Indication: HEADACHE
     Route: 048

REACTIONS (11)
  - Respiratory disorder [Not Recovered/Not Resolved]
  - Motor dysfunction [Unknown]
  - Hypersensitivity [Not Recovered/Not Resolved]
  - Food allergy [Not Recovered/Not Resolved]
  - Muscle spasms [Unknown]
  - Spinal fusion surgery [Unknown]
  - Malaise [Unknown]
  - Adverse event [Unknown]
  - Laryngotracheal oedema [Recovered/Resolved]
  - Constipation [Unknown]
  - Sinus disorder [Not Recovered/Not Resolved]

NARRATIVE: CASE EVENT DATE: 2012
